FAERS Safety Report 14880400 (Version 1)
Quarter: 2018Q2

REPORT INFORMATION
  Report Type: Spontaneous
  Country: ES (occurrence: ES)
  Receive Date: 20180511
  Receipt Date: 20180511
  Transmission Date: 20180711
  Serious: Yes (Death)
  Sender: FDA-Public Use
  Company Number: ES-SA-2018SA130489

PATIENT
  Age: 18 Year
  Sex: Male

DRUGS (4)
  1. CLOFARABINE. [Suspect]
     Active Substance: CLOFARABINE
     Dosage: UNK
     Route: 065
  2. INTERLEUKIN-2 [Concomitant]
     Active Substance: ALDESLEUKIN
     Dosage: UNK
  3. CYCLOPHOSPHAMIDE. [Concomitant]
     Active Substance: CYCLOPHOSPHAMIDE
     Dosage: UNK
  4. ETOPOSIDE. [Concomitant]
     Active Substance: ETOPOSIDE
     Dosage: UNK

REACTIONS (1)
  - Cardiac tamponade [Fatal]
